FAERS Safety Report 21581653 (Version 3)
Quarter: 2023Q2

REPORT INFORMATION
  Report Type: Other
  Country: DE (occurrence: DE)
  Receive Date: 20221111
  Receipt Date: 20230411
  Transmission Date: 20230721
  Serious: Yes (Other)
  Sender: FDA-Public Use
  Company Number: DE-CELLTRION INC.-2022DE018631

PATIENT

DRUGS (10)
  1. RITUXIMAB [Suspect]
     Active Substance: RITUXIMAB
     Indication: Diffuse large B-cell lymphoma
     Dosage: WITH POLATUZUMAB
     Dates: start: 20220906, end: 20220906
  2. RITUXIMAB [Suspect]
     Active Substance: RITUXIMAB
     Dosage: WITH CHOP
     Dates: start: 20220131, end: 20220527
  3. RITUXIMAB [Suspect]
     Active Substance: RITUXIMAB
     Dosage: R-ICE
     Dates: start: 20220629, end: 20220720
  4. RITUXIMAB [Suspect]
     Active Substance: RITUXIMAB
     Dosage: R-DHAP
     Dates: start: 20220812, end: 20220812
  5. POLATUZUMAB VEDOTIN [Suspect]
     Active Substance: POLATUZUMAB VEDOTIN
     Indication: Diffuse large B-cell lymphoma
     Dosage: WITH RITUXIMAB
     Dates: start: 20220906, end: 20220906
  6. CYCLOPHOSPHAMIDE\DOXORUBICIN\PREDNISONE\VINCRISTINE [Suspect]
     Active Substance: CYCLOPHOSPHAMIDE\DOXORUBICIN\PREDNISONE\VINCRISTINE
     Indication: Diffuse large B-cell lymphoma
     Dosage: WITH RITUXIMAB
     Dates: start: 20220131, end: 20220527
  7. CISPLATIN\CYTARABINE\DEXAMETHASONE [Suspect]
     Active Substance: CISPLATIN\CYTARABINE\DEXAMETHASONE
     Indication: Diffuse large B-cell lymphoma
     Dosage: R-DHAP
     Dates: start: 20220812, end: 20220812
  8. IFOSFAMIDE [Suspect]
     Active Substance: IFOSFAMIDE
     Indication: Diffuse large B-cell lymphoma
     Dosage: R-ICE
     Dates: start: 20220629, end: 20220720
  9. CARBOPLATIN [Suspect]
     Active Substance: CARBOPLATIN
     Indication: Diffuse large B-cell lymphoma
     Dosage: R-ICE
     Dates: start: 20220629, end: 20220720
  10. ETOPOSIDE [Suspect]
     Active Substance: ETOPOSIDE
     Indication: Diffuse large B-cell lymphoma
     Dosage: R-ICE
     Dates: start: 20220629, end: 20220720

REACTIONS (7)
  - Diffuse large B-cell lymphoma [Not Recovered/Not Resolved]
  - Cerebral ischaemia [Unknown]
  - Arrhythmia [Unknown]
  - COVID-19 [Unknown]
  - Vascular device infection [Unknown]
  - Pyrexia [Recovered/Resolved]
  - Product use issue [Unknown]
